FAERS Safety Report 9500383 (Version 1)
Quarter: 2013Q1

REPORT INFORMATION
  Report Type: Spontaneous
  Country: US (occurrence: None)
  Receive Date: 20130107
  Receipt Date: 20130107
  Transmission Date: 20140127
  Serious: Yes (Other)
  Sender: FDA-Public Use
  Company Number: PHEH2012US017701

PATIENT
  Age: 49 Year
  Sex: Female

DRUGS (3)
  1. GILENYA [Suspect]
     Indication: MULTIPLE SCLEROSIS
     Route: 048
     Dates: start: 20120607
  2. LISINOPRIL (LISINOPRIL) [Concomitant]
  3. BACLOFEN (BACLOFEN) [Concomitant]

REACTIONS (2)
  - Blood pressure increased [None]
  - Dizziness [None]
